FAERS Safety Report 14304843 (Version 1)
Quarter: 2017Q4

REPORT INFORMATION
  Report Type: Report from Study
  Country: JP (occurrence: JP)
  Receive Date: 20171219
  Receipt Date: 20171219
  Transmission Date: 20180321
  Serious: Yes (Hospitalization, Other)
  Sender: FDA-Public Use
  Company Number: JP-OTSUKA-JP-2013-10282

PATIENT
  Age: 44 Year
  Sex: Female
  Weight: 63 kg

DRUGS (19)
  1. CONTOMIN [Suspect]
     Active Substance: CHLORPROMAZINE
     Dosage: 50 MG, QD
     Route: 048
     Dates: start: 20121210, end: 20121227
  2. HALCION [Concomitant]
     Active Substance: TRIAZOLAM
     Indication: INSOMNIA
     Dosage: 0.25 MG, QD
     Route: 048
  3. ARIPIPRAZOLE. [Suspect]
     Active Substance: ARIPIPRAZOLE
     Dosage: 18 MG, QD
     Route: 048
     Dates: start: 20130124, end: 20130124
  4. CONTOMIN [Suspect]
     Active Substance: CHLORPROMAZINE
     Dosage: 150 MG, QD
     Route: 048
     Dates: start: 20121228, end: 20130114
  5. LEXOTAN [Concomitant]
     Active Substance: BROMAZEPAM
     Indication: BIPOLAR DISORDER
  6. TAKEPRON [Concomitant]
     Active Substance: LANSOPRAZOLE
     Indication: GASTROOESOPHAGEAL REFLUX DISEASE
     Dosage: 15 MG, QD
     Route: 048
  7. ARIPIPRAZOLE. [Suspect]
     Active Substance: ARIPIPRAZOLE
     Dosage: 1 MG, QD
     Route: 048
     Dates: start: 20130129, end: 20130131
  8. ARIPIPRAZOLE. [Suspect]
     Active Substance: ARIPIPRAZOLE
     Indication: MANIA
     Dosage: 3:16DEC12:24MG  17DEC12:23JAN13:30MG  24:24JAN13:18MG  25:28JAN13:3MG
     Route: 048
     Dates: start: 20121203, end: 20130131
  9. ROHYPNOL [Concomitant]
     Active Substance: FLUNITRAZEPAM
     Indication: INSOMNIA
     Dosage: 4 MG, QD
     Route: 048
  10. ARIPIPRAZOLE. [Suspect]
     Active Substance: ARIPIPRAZOLE
     Indication: MANIA
     Dosage: 24 MG, QD
     Route: 048
     Dates: start: 20121203, end: 20121216
  11. CONTOMIN [Suspect]
     Active Substance: CHLORPROMAZINE
     Dosage: 50 MG, QD
     Route: 048
     Dates: start: 20130121, end: 20130129
  12. LEXOTAN [Concomitant]
     Active Substance: BROMAZEPAM
     Indication: INSOMNIA
     Dosage: 15 MG, QD
     Route: 048
     Dates: end: 20130211
  13. HALCION [Concomitant]
     Active Substance: TRIAZOLAM
     Indication: BIPOLAR DISORDER
  14. ARIPIPRAZOLE. [Suspect]
     Active Substance: ARIPIPRAZOLE
     Dosage: 3 MG, QD
     Route: 048
     Dates: start: 20130125, end: 20130128
  15. CONTOMIN [Suspect]
     Active Substance: CHLORPROMAZINE
     Indication: INSOMNIA
     Dosage: 25 MG, QD
     Route: 048
     Dates: start: 20121203, end: 20121209
  16. CONTOMIN [Suspect]
     Active Substance: CHLORPROMAZINE
     Dosage: 100 MG, QD
     Route: 048
     Dates: start: 20130115, end: 20130120
  17. DEPAKENE [Concomitant]
     Active Substance: VALPROIC ACID
     Indication: BIPOLAR DISORDER
     Dosage: 600 MG, QD
     Route: 048
     Dates: start: 20130108, end: 20130129
  18. ROHYPNOL [Concomitant]
     Active Substance: FLUNITRAZEPAM
     Indication: BIPOLAR DISORDER
  19. ARIPIPRAZOLE. [Suspect]
     Active Substance: ARIPIPRAZOLE
     Dosage: 30 MG, QD
     Route: 048
     Dates: start: 20121217, end: 20130123

REACTIONS (3)
  - Parkinsonism [Recovering/Resolving]
  - Blood creatine phosphokinase increased [Unknown]
  - Insomnia [Recovered/Resolved]

NARRATIVE: CASE EVENT DATE: 20121229
